FAERS Safety Report 22138144 (Version 5)
Quarter: 2025Q1

REPORT INFORMATION
  Report Type: Report from Study
  Country: CO (occurrence: CO)
  Receive Date: 20230325
  Receipt Date: 20250327
  Transmission Date: 20250409
  Serious: Yes (Life-Threatening, Hospitalization, Other)
  Sender: NOVARTIS
  Company Number: CO-002147023-PHHY2018CO030859

PATIENT
  Age: 71 Year
  Sex: Female
  Weight: 62 kg

DRUGS (7)
  1. ELTROMBOPAG OLAMINE [Suspect]
     Active Substance: ELTROMBOPAG OLAMINE
     Indication: Immune thrombocytopenia
     Dosage: 50 MG, QD
     Route: 048
     Dates: start: 20170101, end: 202408
  2. ELTROMBOPAG OLAMINE [Suspect]
     Active Substance: ELTROMBOPAG OLAMINE
     Dosage: UNK, QD
     Route: 048
  3. ELTROMBOPAG OLAMINE [Suspect]
     Active Substance: ELTROMBOPAG OLAMINE
     Dosage: 25 MG, QD
     Route: 048
  4. ELTROMBOPAG OLAMINE [Suspect]
     Active Substance: ELTROMBOPAG OLAMINE
     Dosage: 25 MG, QD
     Route: 048
  5. ELTROMBOPAG OLAMINE [Suspect]
     Active Substance: ELTROMBOPAG OLAMINE
     Route: 065
     Dates: start: 202412, end: 202502
  6. ELTROMBOPAG OLAMINE [Suspect]
     Active Substance: ELTROMBOPAG OLAMINE
     Route: 065
     Dates: start: 202501
  7. ELTROMBOPAG OLAMINE [Suspect]
     Active Substance: ELTROMBOPAG OLAMINE
     Dosage: 25 MG, QD
     Route: 048
     Dates: start: 20250318

REACTIONS (20)
  - Platelet count decreased [Unknown]
  - Gingival bleeding [Unknown]
  - Fear [Unknown]
  - Malaise [Unknown]
  - Hand fracture [Recovered/Resolved]
  - Fall [Recovered/Resolved]
  - Road traffic accident [Recovered/Resolved]
  - Cystocele [Unknown]
  - Headache [Recovered/Resolved]
  - Nausea [Unknown]
  - Thrombosis [Unknown]
  - Cataract [Recovered/Resolved]
  - Epistaxis [Recovered/Resolved]
  - Gait disturbance [Unknown]
  - Illness [Unknown]
  - Arthropathy [Unknown]
  - Body height decreased [Unknown]
  - Dizziness [Recovered/Resolved]
  - Musculoskeletal chest pain [Recovered/Resolved]
  - Vitamin B complex deficiency [Recovered/Resolved]

NARRATIVE: CASE EVENT DATE: 20241001
